FAERS Safety Report 25929235 (Version 4)
Quarter: 2025Q4

REPORT INFORMATION
  Report Type: Report from Study
  Country: BR (occurrence: BR)
  Receive Date: 20251016
  Receipt Date: 20251218
  Transmission Date: 20260117
  Serious: No
  Sender: MIRUM PHARMACEUTICALS
  Company Number: BR-MIRUM PHARMACEUTICALS, INC.-BR-MIR-25-00731

PATIENT

DRUGS (4)
  1. LIVMARLI [Suspect]
     Active Substance: MARALIXIBAT CHLORIDE
     Indication: Alagille syndrome
     Dosage: 0.5 MILLILITER, QD
     Route: 048
     Dates: start: 20250529
  2. RIFAMPIN [Concomitant]
     Active Substance: RIFAMPIN
     Indication: Pruritus
     Dosage: UNK, Q12H (300 MG 0.8 ML, Q12H)
     Route: 048
     Dates: start: 202405
  3. RIFAMPIN [Concomitant]
     Active Substance: RIFAMPIN
     Dosage: 1 MILLILITER, QD
     Route: 065
     Dates: start: 20250529
  4. RIFAMPIN [Concomitant]
     Active Substance: RIFAMPIN
     Dosage: UNK, Q12H (300 MG 0.8 ML, Q12H)
     Route: 048

REACTIONS (1)
  - Bile acids abnormal [Not Recovered/Not Resolved]

NARRATIVE: CASE EVENT DATE: 20250804
